FAERS Safety Report 4657437-5 (Version None)
Quarter: 2005Q2

REPORT INFORMATION
  Report Type: 
  Country: None (occurrence: None)
  Receive Date: 20050509
  Receipt Date: 20050509
  Transmission Date: 20051028
  Serious: Yes (Hospitalization, Other)
  Sender: FDA-Public Use
  Company Number: None

PATIENT
  Age: 49 Year
  Sex: Female

DRUGS (6)
  1. CORICIDIN D SRT [Suspect]
     Indication: HYPERSENSITIVITY
     Dosage: ORAL
     Route: 048
  2. ROBITUSSIN [Concomitant]
  3. COMTREX [Concomitant]
  4. CONTAC MAXIMUM STRENGTH SINUS [Concomitant]
  5. ALKA SELTZER PLUS COLD + FLU (APAP/CHLORPHENIRAMINE/PPA/DM) [Concomitant]
  6. ASPIRIN [Concomitant]

REACTIONS (1)
  - ISCHAEMIC STROKE [None]
